FAERS Safety Report 13142180 (Version 2)
Quarter: 2017Q3

REPORT INFORMATION
  Report Type: Spontaneous
  Country: US (occurrence: US)
  Receive Date: 20170124
  Receipt Date: 20170917
  Transmission Date: 20171127
  Serious: Yes (Hospitalization, Other)
  Sender: FDA-Public Use
  Company Number: US-009507513-1701USA008202

PATIENT
  Age: 58 Year
  Sex: Male
  Weight: 74.83 kg

DRUGS (5)
  1. AMLODIPINE [Suspect]
     Active Substance: AMLODIPINE BESYLATE
     Indication: HYPERTENSION
     Dosage: 5 MG, QD (ONCE A DAY BY MOUTH)
     Route: 048
     Dates: start: 20161220
  2. HYDROCHLOROTHIAZIDE. [Suspect]
     Active Substance: HYDROCHLOROTHIAZIDE
     Indication: DIURETIC THERAPY
     Dosage: 25 MG, QD (ONCE A DAY)
     Dates: start: 201609, end: 201612
  3. KLONOPIN [Concomitant]
     Active Substance: CLONAZEPAM
     Indication: BLOOD PRESSURE MEASUREMENT
     Dosage: 0.1 MG, AS NEEDED IF BOTTOM NUMBER IS OVER 100
     Dates: start: 20161215
  4. LOVASTATIN. [Concomitant]
     Active Substance: LOVASTATIN
     Indication: BLOOD CHOLESTEROL
     Dosage: 10 MG, QD
  5. PRINIVIL [Suspect]
     Active Substance: LISINOPRIL
     Indication: BLOOD PRESSURE MEASUREMENT
     Dosage: 20 MG, QD (ONCE A DAY)
     Dates: start: 2016, end: 201612

REACTIONS (10)
  - Blood pressure decreased [Recovering/Resolving]
  - Foot fracture [Unknown]
  - Head injury [Unknown]
  - Blood creatinine increased [Recovering/Resolving]
  - Seizure [Recovered/Resolved]
  - Blood glucose decreased [Not Recovered/Not Resolved]
  - Dehydration [Not Recovered/Not Resolved]
  - Syncope [Unknown]
  - Dizziness [Unknown]
  - Tremor [Recovered/Resolved]

NARRATIVE: CASE EVENT DATE: 201612
